FAERS Safety Report 6302298-1 (Version None)
Quarter: 2009Q3

REPORT INFORMATION
  Report Type: 
  Country: None (occurrence: None)
  Receive Date: 20090810
  Receipt Date: 20090730
  Transmission Date: 20100115
  Serious: Yes (Other)
  Sender: FDA-Public Use
  Company Number: AU-PFIZER INC-2009248448

PATIENT
  Age: 54 Year

DRUGS (5)
  1. LIPITOR [Suspect]
     Dosage: 40 MG, 1X/DAY
  2. LIPITOR [Suspect]
     Dosage: 80 MG, 1X/DAY
  3. ASPRO [Concomitant]
  4. PLAVIX [Concomitant]
  5. COVERSYL [Concomitant]

REACTIONS (8)
  - LIBIDO DECREASED [None]
  - MUSCULAR WEAKNESS [None]
  - MUSCULOSKELETAL PAIN [None]
  - MYALGIA [None]
  - PAIN [None]
  - PARAESTHESIA [None]
  - PSORIATIC ARTHROPATHY [None]
  - TRANSIENT ISCHAEMIC ATTACK [None]
